FAERS Safety Report 9204720 (Version 1)
Quarter: 2013Q1

REPORT INFORMATION
  Report Type: Spontaneous
  Country: US (occurrence: None)
  Receive Date: 20130329
  Receipt Date: 20130329
  Transmission Date: 20140127
  Serious: Yes (Hospitalization)
  Sender: FDA-Public Use
  Company Number: UTC-030898

PATIENT
  Age: 63 Year
  Sex: Male
  Weight: 70.45 kg

DRUGS (2)
  1. TYVASO (6 MICROGRAM, AEROSOL FOR INHALATION) (TREPROSTINIL SODIUM) [Suspect]
     Indication: COR PULMONALE CHRONIC
     Dosage: 18-54 MICROGRAMS
     Dates: start: 20130206
  2. ADCIRCA (TADALAFIL) [Concomitant]

REACTIONS (2)
  - Palpitations [None]
  - Heart rate irregular [None]
